APPROVED DRUG PRODUCT: MIDAZOLAM HYDROCHLORIDE
Active Ingredient: MIDAZOLAM HYDROCHLORIDE
Strength: EQ 2MG BASE/ML
Dosage Form/Route: SYRUP;ORAL
Application: A076058 | Product #001
Applicant: SUN PHARMACEUTICAL INDUSTRIES LTD
Approved: Mar 15, 2002 | RLD: No | RS: No | Type: DISCN